FAERS Safety Report 5909353-6 (Version None)
Quarter: 2008Q4

REPORT INFORMATION
  Report Type: 
  Country: None (occurrence: None)
  Receive Date: 20081006
  Receipt Date: 20080925
  Transmission Date: 20090506
  Serious: Yes (Other)
  Sender: FDA-Public Use
  Company Number: GB-PFIZER INC-2008081297

PATIENT

DRUGS (2)
  1. ZITHROMAX [Suspect]
  2. ZITHROMAX UNO [Suspect]

REACTIONS (2)
  - HYPERSENSITIVITY [None]
  - SWELLING FACE [None]
